FAERS Safety Report 7818178-6 (Version None)
Quarter: 2011Q4

REPORT INFORMATION
  Report Type: 
  Country: None (occurrence: None)
  Receive Date: 20111017
  Receipt Date: 20111003
  Transmission Date: 20120403
  Serious: Yes (Other)
  Sender: FDA-Public Use
  Company Number: US-ELI_LILLY_AND_COMPANY-US201110000719

PATIENT
  Sex: Female

DRUGS (5)
  1. HUMALOG [Suspect]
     Indication: DIABETES MELLITUS
     Dosage: 10 U, OTHER
     Dates: start: 19930101
  2. HUMULIN 70/30 [Suspect]
     Indication: DIABETES MELLITUS
     Dosage: UNK
     Dates: start: 19760101, end: 19930101
  3. LANTUS [Concomitant]
     Indication: DIABETES MELLITUS
     Dosage: UNK, EACH EVENING
  4. HUMALOG [Suspect]
     Dosage: 10 U, OTHER
     Dates: start: 19930101
  5. HUMALOG [Suspect]
     Dosage: UNK, UNKNOWN
     Dates: start: 20110101

REACTIONS (10)
  - HYPOGLYCAEMIA UNAWARENESS [None]
  - MEMORY IMPAIRMENT [None]
  - LOWER LIMB FRACTURE [None]
  - OSTEOPOROSIS [None]
  - ANKLE FRACTURE [None]
  - FALL [None]
  - GLYCOSYLATED HAEMOGLOBIN INCREASED [None]
  - BLOOD GLUCOSE INCREASED [None]
  - BLOOD GLUCOSE DECREASED [None]
  - MENTAL IMPAIRMENT [None]
